FAERS Safety Report 4366419-2 (Version None)
Quarter: 2004Q2

REPORT INFORMATION
  Report Type: 
  Country: None (occurrence: None)
  Receive Date: 20040527
  Receipt Date: 20040316
  Transmission Date: 20050107
  Serious: No
  Sender: FDA-Public Use
  Company Number: US-BRISTOL-MYERS SQUIBB COMPANY-12534178

PATIENT

DRUGS (1)
  1. ERBITUX [Suspect]
     Route: 042
     Dates: start: 20040315, end: 20040315

REACTIONS (1)
  - EYE SWELLING [None]
